FAERS Safety Report 16275265 (Version 2)
Quarter: 2019Q2

REPORT INFORMATION
  Report Type: Spontaneous
  Country: US (occurrence: US)
  Receive Date: 20190504
  Receipt Date: 20190509
  Transmission Date: 20190711
  Serious: Yes (Hospitalization)
  Sender: FDA-Public Use
  Company Number: PHEH2019US018316

PATIENT
  Sex: Female

DRUGS (1)
  1. KISQALI [Suspect]
     Active Substance: RIBOCICLIB
     Indication: BREAST CANCER FEMALE
     Dosage: 200 MG, TID
     Route: 048

REACTIONS (7)
  - Inappropriate schedule of product administration [Unknown]
  - Crying [Unknown]
  - Abdominal pain [Unknown]
  - Abdominal distension [Unknown]
  - Ill-defined disorder [Unknown]
  - Emotional disorder [Unknown]
  - Malaise [Unknown]
